FAERS Safety Report 19328597 (Version 1)
Quarter: 2021Q2

REPORT INFORMATION
  Report Type: Spontaneous
  Country: US (occurrence: US)
  Receive Date: 20210528
  Receipt Date: 20210528
  Transmission Date: 20210717
  Serious: Yes (Other)
  Sender: FDA-Public Use
  Company Number: NVSC2021US119108

PATIENT
  Sex: Female

DRUGS (1)
  1. NADOLOL. [Suspect]
     Active Substance: NADOLOL
     Indication: FOETAL EXPOSURE DURING PREGNANCY
     Dosage: MATERNAL DOSE: 40 MG, QD (40 MG, QD (3YRS PRIOR TO AND IN PREG)
     Route: 064

REACTIONS (7)
  - Foetal exposure during pregnancy [Unknown]
  - Oligohydramnios [Unknown]
  - Bradycardia [Unknown]
  - Hypoglycaemia [Recovered/Resolved]
  - Premature baby [Unknown]
  - Foetal growth restriction [Unknown]
  - Small for dates baby [Unknown]
